FAERS Safety Report 9550049 (Version 1)
Quarter: 2013Q3

REPORT INFORMATION
  Report Type: Spontaneous
  Country: US (occurrence: US)
  Receive Date: 20130924
  Receipt Date: 20130924
  Transmission Date: 20140515
  Serious: Yes (Death, Hospitalization)
  Sender: FDA-Public Use
  Company Number: PHHY2013US104833

PATIENT
  Age: 23 Year
  Sex: Male

DRUGS (4)
  1. METHADONE [Suspect]
     Dosage: 40 MG, UNK
  2. ALPRAZOLAM [Suspect]
     Dosage: 3 MG, UNK
  3. HEROIN [Suspect]
  4. CANNABINOIDS [Suspect]

REACTIONS (12)
  - Toxicity to various agents [Fatal]
  - Brain injury [Unknown]
  - Unresponsive to stimuli [Unknown]
  - Multi-organ failure [Unknown]
  - Rhabdomyolysis [Unknown]
  - Renal failure acute [Unknown]
  - Central nervous system necrosis [Unknown]
  - Pulmonary oedema [Unknown]
  - Dyspnoea [Unknown]
  - Pulse absent [Unknown]
  - Loss of consciousness [Unknown]
  - Substance abuse [Unknown]
